FAERS Safety Report 4322635-7 (Version None)
Quarter: 2004Q1

REPORT INFORMATION
  Report Type: 
  Country: None (occurrence: None)
  Receive Date: 20040324
  Receipt Date: 20040318
  Transmission Date: 20041129
  Serious: Yes (Hospitalization)
  Sender: FDA-Public Use
  Company Number: WAES 0403USA01650

PATIENT
  Age: 43 Year
  Sex: Male

DRUGS (3)
  1. PROTONIX [Concomitant]
  2. VIOXX [Suspect]
     Indication: PAIN
     Route: 048
     Dates: start: 20030102
  3. EFFEXOR [Concomitant]

REACTIONS (1)
  - DIVERTICULAR PERFORATION [None]
